FAERS Safety Report 6432723-7 (Version None)
Quarter: 2009Q4

REPORT INFORMATION
  Report Type: 
  Country: None (occurrence: None)
  Receive Date: 20091109
  Receipt Date: 20090814
  Transmission Date: 20100525
  Serious: No
  Sender: FDA-Public Use
  Company Number: US-BAYER-200930805NA

PATIENT
  Sex: Male
  Weight: 73 kg

DRUGS (5)
  1. ULTRAVIST 300 [Suspect]
     Indication: COMPUTERISED TOMOGRAM THORAX
     Dosage: TOTAL DAILY DOSE: 110 ML  UNIT DOSE: 200 ML
     Route: 042
     Dates: start: 20090814, end: 20090814
  2. VALIUM [Concomitant]
  3. VICODIN [Concomitant]
  4. TORADOL [Concomitant]
  5. VOLUMEN [Concomitant]
     Route: 048
     Dates: start: 20090814, end: 20090814

REACTIONS (3)
  - ERYTHEMA [None]
  - PRURITUS [None]
  - URTICARIA [None]
